FAERS Safety Report 18490808 (Version 1)
Quarter: 2020Q4

REPORT INFORMATION
  Report Type: Spontaneous
  Country: US (occurrence: US)
  Receive Date: 20201111
  Receipt Date: 20201111
  Transmission Date: 20210114
  Serious: No
  Sender: FDA-Public Use
  Company Number: None

PATIENT
  Sex: Female

DRUGS (4)
  1. SUMATRIPTAN. [Concomitant]
     Active Substance: SUMATRIPTAN
  2. COSENTYX [Suspect]
     Active Substance: SECUKINUMAB
     Indication: PSORIATIC ARTHROPATHY
     Dosage: ?          OTHER FREQUENCY:EVERY 4 WKS;?
     Route: 059
     Dates: start: 20190925
  3. ADVIL [Concomitant]
     Active Substance: IBUPROFEN
  4. OTEZLA [Suspect]
     Active Substance: APREMILAST

REACTIONS (2)
  - Product dose omission issue [None]
  - Condition aggravated [None]
